FAERS Safety Report 12389618 (Version 3)
Quarter: 2016Q2

REPORT INFORMATION
  Report Type: Spontaneous
  Country: FR (occurrence: FR)
  Receive Date: 20160520
  Receipt Date: 20160601
  Transmission Date: 20160815
  Serious: Yes (Hospitalization)
  Sender: FDA-Public Use
  Company Number: FR-PFIZER INC-2016259484

PATIENT
  Age: 48 Year
  Sex: Female

DRUGS (9)
  1. XANAX [Suspect]
     Active Substance: ALPRAZOLAM
     Dosage: 0.50 MG, 1X/DAY, AS NEEDED
     Route: 048
  2. ESTRADIOL. [Suspect]
     Active Substance: ESTRADIOL
     Dosage: 50 UG, 2X/WEEK
     Route: 062
  3. AERIUS [Suspect]
     Active Substance: DESLORATADINE
     Dosage: 5 MG, 1X/DAY
     Route: 048
  4. ULTIBRO [Concomitant]
     Active Substance: GLYCOPYRRONIUM\INDACATEROL
     Dosage: UNK
  5. TRIFLUCAN [Suspect]
     Active Substance: FLUCONAZOLE
     Dosage: UNK
     Route: 048
     Dates: start: 2016
  6. PRIVIGEN [Suspect]
     Active Substance: HUMAN IMMUNOGLOBULIN G
     Dosage: 20 G, WEEKLY
  7. VENTOLINE /00139501/ [Concomitant]
     Active Substance: ALBUTEROL
     Dosage: UNK
  8. SPRYCEL [Suspect]
     Active Substance: DASATINIB
     Dosage: 100 MG, 1X/DAY
     Route: 048
     Dates: start: 2011, end: 20160428
  9. KARDEGIC [Suspect]
     Active Substance: ASPIRIN LYSINE
     Dosage: 75 MG, 1X/DAY
     Route: 048

REACTIONS (2)
  - Cardiac failure [Not Recovered/Not Resolved]
  - Pulmonary arterial hypertension [Not Recovered/Not Resolved]

NARRATIVE: CASE EVENT DATE: 201604
